FAERS Safety Report 4367678-2 (Version None)
Quarter: 2004Q2

REPORT INFORMATION
  Report Type: 
  Country: None (occurrence: None)
  Receive Date: 20040601
  Receipt Date: 20040519
  Transmission Date: 20050107
  Serious: Yes (Hospitalization)
  Sender: FDA-Public Use
  Company Number: FR-GLAXOSMITHKLINE-B0333385A

PATIENT
  Age: 21 Year
  Sex: Male

DRUGS (7)
  1. ALKERAN [Suspect]
     Indication: LYMPHOMA
     Route: 042
  2. DEROXAT [Suspect]
     Route: 048
  3. BLEOMYCIN [Suspect]
     Indication: LYMPHOMA
     Route: 042
  4. BICNU [Suspect]
     Indication: LYMPHOMA
     Route: 042
  5. ENDOXAN [Suspect]
     Indication: LYMPHOMA
     Route: 042
  6. VINBLASTINE SULFATE [Suspect]
     Indication: LYMPHOMA
     Route: 042
  7. RADIOTHERAPY [Concomitant]
     Indication: LYMPHOMA

REACTIONS (3)
  - CONDITION AGGRAVATED [None]
  - PULMONARY FIBROSIS [None]
  - RESPIRATORY DISTRESS [None]
